FAERS Safety Report 8785693 (Version 1)
Quarter: 2012Q4

REPORT INFORMATION
  Report Type: 
  Country: US (occurrence: US)
  Receive Date: 20120914
  Receipt Date: 20120914
  Transmission Date: 20130627
  Serious: Yes (Other)
  Sender: FDA-Public Use
  Company Number: US-ROXANE LABORATORIES, INC.-2012-RO-01823RO

PATIENT
  Age: 58 Year
  Sex: Male

DRUGS (1)
  1. CITALOPRAM [Suspect]
     Indication: DEPRESSION

REACTIONS (1)
  - Tourette^s disorder [Not Recovered/Not Resolved]
